APPROVED DRUG PRODUCT: PAROMOMYCIN SULFATE
Active Ingredient: PAROMOMYCIN SULFATE
Strength: EQ 250MG BASE
Dosage Form/Route: CAPSULE;ORAL
Application: A065173 | Product #001
Applicant: HERITAGE PHARMACEUTICALS INC DBA AVET PHARMACEUTICALS INC
Approved: Dec 14, 2007 | RLD: No | RS: Yes | Type: RX